FAERS Safety Report 8394947-1 (Version None)
Quarter: 2012Q2

REPORT INFORMATION
  Report Type: 
  Country: None (occurrence: None)
  Receive Date: 20120530
  Receipt Date: 20111025
  Transmission Date: 20120825
  Serious: Yes (Other)
  Sender: FDA-Public Use
  Company Number: US-GLAXOSMITHKLINE-A0951424A

PATIENT
  Age: 66 Year
  Sex: Male
  Weight: 69.5 kg

DRUGS (1)
  1. FLOLAN [Suspect]
     Indication: COR PULMONALE CHRONIC
     Dosage: 22.5NGKM UNKNOWN
     Route: 065
     Dates: start: 20080226

REACTIONS (1)
  - THROMBOCYTOPENIA [None]
